FAERS Safety Report 19828236 (Version 1)
Quarter: 2021Q3

REPORT INFORMATION
  Report Type: Spontaneous
  Country: DE (occurrence: DE)
  Receive Date: 20210914
  Receipt Date: 20210914
  Transmission Date: 20211014
  Serious: Yes (Hospitalization)
  Sender: FDA-Public Use
  Company Number: DE-TEVA-2021-DE-1951439

PATIENT
  Age: 85 Year
  Sex: Male
  Weight: 80 kg

DRUGS (17)
  1. CETIRIZIN [Suspect]
     Active Substance: CETIRIZINE HYDROCHLORIDE
     Dosage: 10 MILLIGRAM DAILY; 0?0?1?0
     Route: 065
  2. SPIRONOLACTON [Concomitant]
     Active Substance: SPIRONOLACTONE
     Dosage: .5 DOSAGE FORMS DAILY; 50 MG, 0.5?0?0?0
  3. ZOLPIDEM [Concomitant]
     Active Substance: ZOLPIDEM TARTRATE
     Dosage: 10 MILLIGRAM DAILY;  0?0?1?0
  4. FLUTICASON/FORMOTEROL [Concomitant]
     Dosage: 2 DOSAGE FORMS DAILY; 125|5 MCG, 1?0?1?0
  5. DIGITOXIN [Concomitant]
     Active Substance: DIGITOXIN
     Dosage: .14 MILLIGRAM DAILY; 1?0?1?0
  6. ALLOPURINOL. [Concomitant]
     Active Substance: ALLOPURINOL
     Dosage: 100 MILLIGRAM DAILY; 0?0?1?0
  7. AMOXICILLIN. [Concomitant]
     Active Substance: AMOXICILLIN
     Dosage: 2000 MILLIGRAM DAILY; 1?0?1?0
  8. ROSUVASTATIN. [Concomitant]
     Active Substance: ROSUVASTATIN
     Dosage: 20 MILLIGRAM DAILY;  0?0?1?0
  9. TAMSULOSIN [Concomitant]
     Active Substance: TAMSULOSIN
     Dosage: .4 MILLIGRAM DAILY; 0?0?1?0
  10. MONTELUKAST [Concomitant]
     Active Substance: MONTELUKAST SODIUM
     Dosage: 10 MILLIGRAM DAILY; 0?0?0?1
  11. AMLODIPIN [Concomitant]
     Active Substance: AMLODIPINE BESYLATE
     Dosage: 5 MILLIGRAM DAILY; 1?0?0?0
  12. RABEPRAZOL [Concomitant]
     Active Substance: RABEPRAZOLE
     Dosage: 20 MILLIGRAM DAILY; 1?0?0?0
  13. APIXABAN [Concomitant]
     Active Substance: APIXABAN
     Dosage: 10 MILLIGRAM DAILY; 1?0?1?0
  14. TORASEMID [Concomitant]
     Active Substance: TORSEMIDE
     Dosage: 10 MG, 2?1?0?0
  15. PANTOPRAZOL [Concomitant]
     Active Substance: PANTOPRAZOLE SODIUM
     Dosage: 40 MILLIGRAM DAILY; 0?0?1?0
  16. LEVETIRACETAM. [Concomitant]
     Active Substance: LEVETIRACETAM
     Dosage: 1000 MILLIGRAM DAILY; 1?0?1?0
  17. EZETIMIB [Concomitant]
     Active Substance: EZETIMIBE
     Dosage: 10 MILLIGRAM DAILY; 0?0?1?0

REACTIONS (14)
  - Systemic infection [Recovering/Resolving]
  - Disorientation [Recovering/Resolving]
  - General physical health deterioration [Recovering/Resolving]
  - Headache [Recovering/Resolving]
  - Restlessness [Recovering/Resolving]
  - Confusional state [Recovering/Resolving]
  - Fatigue [Recovering/Resolving]
  - Atrial fibrillation [Recovering/Resolving]
  - Electrocardiogram abnormal [Recovering/Resolving]
  - Aphasia [Recovering/Resolving]
  - Personality change [Recovering/Resolving]
  - Seizure [Recovering/Resolving]
  - Delirium [Recovering/Resolving]
  - Agitation [Recovering/Resolving]
